FAERS Safety Report 6696097-9 (Version None)
Quarter: 2010Q2

REPORT INFORMATION
  Report Type: 
  Country: None (occurrence: None)
  Receive Date: 20100426
  Receipt Date: 20100412
  Transmission Date: 20101027
  Serious: Yes (Other)
  Sender: FDA-Public Use
  Company Number: US-ASTRAZENECA-2009SE13347

PATIENT
  Age: 21267 Day
  Sex: Male
  Weight: 104.3 kg

DRUGS (3)
  1. SEROQUEL [Suspect]
     Indication: SLEEP DISORDER
     Route: 048
     Dates: start: 20060814
  2. TRAMADOL HCL [Concomitant]
     Indication: NEUROPATHY PERIPHERAL
     Dates: start: 20090309
  3. LITHIUM CARBONATE [Concomitant]
     Dates: start: 20060814

REACTIONS (2)
  - DIABETES MELLITUS [None]
  - NEUROPATHY PERIPHERAL [None]
